FAERS Safety Report 9932088 (Version 2)
Quarter: 2014Q1

REPORT INFORMATION
  Report Type: Spontaneous
  Country: IT (occurrence: None)
  Receive Date: 20140226
  Receipt Date: 20140306
  Transmission Date: 20141002
  Serious: Yes (Hospitalization)
  Sender: FDA-Public Use
  Company Number: AUR-APL-2014-02149

PATIENT
  Age: 75 Year
  Sex: Male

DRUGS (15)
  1. METFORMIN [Suspect]
     Indication: PRODUCT USED FOR UNKNOWN INDICATION
  2. RAMIPRIL [Suspect]
     Indication: PRODUCT USED FOR UNKNOWN INDICATION
  3. CARVEDILOL [Suspect]
     Indication: PRODUCT USED FOR UNKNOWN INDICATION
  4. AMLODIPINE (AMLODIPINE) [Suspect]
     Indication: PRODUCT USED FOR UNKNOWN INDICATION
  5. DOXAZOSIN (DOXAZOSIN) [Suspect]
     Indication: PRODUCT USED FOR UNKNOWN INDICATION
  6. IVABRADINE HYDROCHLORIDE [Suspect]
     Indication: PRODUCT USED FOR UNKNOWN INDICATION
  7. GLIBENCLAMIDE [Suspect]
     Indication: PRODUCT USED FOR UNKNOWN INDICATION
  8. LOSARTAN [Suspect]
     Indication: PRODUCT USED FOR UNKNOWN INDICATION
  9. FUROSEMIDE (FUROSEMIDE) [Suspect]
     Indication: PRODUCT USED FOR UNKNOWN INDICATION
  10. CLOPIDOGREL (CLOPIDOGREL) [Suspect]
     Indication: PRODUCT USED FOR UNKNOWN INDICATION
  11. ASPIRIN (ACETYLSALICYLIC ACID) [Suspect]
     Indication: PRODUCT USED FOR UNKNOWN INDICATION
  12. ISOSORBIDE MONONITRATE [Suspect]
     Indication: PRODUCT USED FOR UNKNOWN INDICATION
  13. URSODEOXYCHOLIC ACID [Suspect]
     Indication: PRODUCT USED FOR UNKNOWN INDICATION
  14. GLYCERYL TRINITRATE [Suspect]
     Indication: PRODUCT USED FOR UNKNOWN INDICATION
  15. RANOLAZINE [Suspect]
     Indication: PRODUCT USED FOR UNKNOWN INDICATION

REACTIONS (4)
  - Photopsia [None]
  - Hallucination, visual [None]
  - Cardiac failure [None]
  - PO2 decreased [None]
